FAERS Safety Report 5267009-X (Version None)
Quarter: 2007Q1

REPORT INFORMATION
  Report Type: 
  Country: None (occurrence: None)
  Receive Date: 20070316
  Receipt Date: 20070222
  Transmission Date: 20070707
  Serious: Yes (Other)
  Sender: FDA-Public Use
  Company Number: BR-BAYER-200711275GDS

PATIENT
  Age: 50 Year
  Sex: Male
  Weight: 134 kg

DRUGS (3)
  1. CIPRO XR [Suspect]
     Indication: PROSTATITIS
     Dosage: UNIT DOSE: 1000 MG
     Route: 048
     Dates: start: 20070216, end: 20070216
  2. ATENOL (ATENOLOL) [Concomitant]
     Indication: HYPERTENSION
     Dosage: UNIT DOSE: 50 MG
     Route: 048
  3. NORVASC [Concomitant]
     Indication: HYPERTENSION
     Dosage: UNIT DOSE: 5 MG
     Route: 048
     Dates: start: 19990101

REACTIONS (4)
  - ERYTHEMA [None]
  - PRURITUS [None]
  - TONGUE OEDEMA [None]
  - URTICARIA [None]
